FAERS Safety Report 12430752 (Version 2)
Quarter: 2016Q2

REPORT INFORMATION
  Report Type: Spontaneous
  Country: US (occurrence: US)
  Receive Date: 20160602
  Receipt Date: 20160622
  Transmission Date: 20160815
  Serious: Yes (Other)
  Sender: FDA-Public Use
  Company Number: US-PURDUE-USA-2016-0130826

PATIENT
  Age: 68 Year
  Sex: Male

DRUGS (11)
  1. ACIPHEX [Concomitant]
     Active Substance: RABEPRAZOLE SODIUM
     Indication: GASTROINTESTINAL DISORDER
     Dosage: 20 MG, UNK
     Route: 048
  2. STOOL SOFTENER [Concomitant]
     Active Substance: DOCUSATE CALCIUM
     Indication: PRODUCT USED FOR UNKNOWN INDICATION
  3. MIRALAX [Concomitant]
     Active Substance: POLYETHYLENE GLYCOL 3350
     Indication: PRODUCT USED FOR UNKNOWN INDICATION
     Route: 048
  4. MS CONTIN [Suspect]
     Active Substance: MORPHINE SULFATE
     Indication: PAIN
     Dosage: 30 MG, BID
     Route: 048
  5. ASPIRIN. [Concomitant]
     Active Substance: ASPIRIN
     Indication: PRODUCT USED FOR UNKNOWN INDICATION
     Dosage: 81 MG, UNK
     Route: 048
  6. PROSCAR [Concomitant]
     Active Substance: FINASTERIDE
     Indication: PROSTATIC DISORDER
     Dosage: 5 MG, UNK
     Route: 048
  7. MULTIVITAMIN                       /00097801/ [Concomitant]
     Active Substance: VITAMINS
     Indication: PRODUCT USED FOR UNKNOWN INDICATION
     Route: 048
  8. CALCIUM [Concomitant]
     Active Substance: CALCIUM
     Indication: PRODUCT USED FOR UNKNOWN INDICATION
     Route: 048
  9. NORCO [Suspect]
     Active Substance: ACETAMINOPHEN\HYDROCODONE BITARTRATE
     Indication: PAIN
     Route: 048
  10. LOTREL [Concomitant]
     Active Substance: AMLODIPINE BESYLATE\BENAZEPRIL HYDROCHLORIDE
     Indication: HYPERTENSION
     Dosage: 10/20, DAILY
     Route: 048
  11. ZOLOFT [Suspect]
     Active Substance: SERTRALINE HYDROCHLORIDE
     Indication: PRODUCT USED FOR UNKNOWN INDICATION
     Route: 065

REACTIONS (9)
  - Increased upper airway secretion [Not Recovered/Not Resolved]
  - Breast tenderness [Not Recovered/Not Resolved]
  - Arthralgia [Not Recovered/Not Resolved]
  - Musculoskeletal chest pain [Not Recovered/Not Resolved]
  - Hypersensitivity [Not Recovered/Not Resolved]
  - Pain [Not Recovered/Not Resolved]
  - Increased bronchial secretion [Not Recovered/Not Resolved]
  - Somnolence [Not Recovered/Not Resolved]
  - Prostatic specific antigen increased [Unknown]

NARRATIVE: CASE EVENT DATE: 20160601
